FAERS Safety Report 25859842 (Version 1)
Quarter: 2025Q3

REPORT INFORMATION
  Report Type: Spontaneous
  Country: EU (occurrence: EU)
  Receive Date: 20250929
  Receipt Date: 20250929
  Transmission Date: 20251020
  Serious: Yes (Other)
  Sender: AMGEN
  Company Number: EU-AMGEN-DEUSP2025190770

PATIENT
  Age: 19 Year
  Sex: Male

DRUGS (1)
  1. ADALIMUMAB [Suspect]
     Active Substance: ADALIMUMAB
     Indication: Crohn^s disease
     Dosage: 40 MILLIGRAM, QWK
     Route: 065

REACTIONS (10)
  - Corneal neovascularisation [Recovering/Resolving]
  - Photophobia [Recovering/Resolving]
  - Visual acuity tests abnormal [Recovering/Resolving]
  - Foreign body sensation in eyes [Unknown]
  - Astigmatism [Unknown]
  - Inappropriate schedule of product administration [Unknown]
  - Overdose [Unknown]
  - Meibomian gland dysfunction [Unknown]
  - Rosacea [Unknown]
  - Vision blurred [Unknown]
